FAERS Safety Report 24281225 (Version 1)
Quarter: 2024Q3

REPORT INFORMATION
  Report Type: Spontaneous
  Country: US (occurrence: None)
  Receive Date: 20240830
  Receipt Date: 20240830
  Transmission Date: 20241017
  Serious: Yes (Life-Threatening, Hospitalization)
  Sender: Public
  Company Number: None

PATIENT
  Age: 81 Year
  Sex: Female
  Weight: 57.6 kg

DRUGS (1)
  1. YESCARTA [Suspect]
     Active Substance: AXICABTAGENE CILOLEUCEL
     Indication: Diffuse large B-cell lymphoma
     Dosage: 68 ML ONCE INTRAVENOUS DRIP
     Route: 041
     Dates: start: 20240624, end: 20240624

REACTIONS (5)
  - Immune effector cell-associated neurotoxicity syndrome [None]
  - Nervous system disorder [None]
  - Hemiparesis [None]
  - Facial paralysis [None]
  - Transient ischaemic attack [None]

NARRATIVE: CASE EVENT DATE: 20240706
